FAERS Safety Report 8369632-2 (Version None)
Quarter: 2012Q2

REPORT INFORMATION
  Report Type: 
  Country: None (occurrence: None)
  Receive Date: 20120518
  Receipt Date: 20120515
  Transmission Date: 20120825
  Serious: Yes (Other)
  Sender: FDA-Public Use
  Company Number: PHHY2012NO041239

PATIENT
  Sex: Female

DRUGS (2)
  1. TAMOXIFEN CITRATE [Concomitant]
     Dosage: 20 MG X 1
     Dates: start: 20101001, end: 20101001
  2. FEMARA [Suspect]
     Indication: BREAST CANCER
     Dosage: UNK UKN, UNK

REACTIONS (2)
  - CONJUNCTIVAL HAEMORRHAGE [None]
  - SKIN HAEMORRHAGE [None]
